FAERS Safety Report 16055044 (Version 1)
Quarter: 2019Q1

REPORT INFORMATION
  Report Type: Spontaneous
  Country: US (occurrence: US)
  Receive Date: 20190209
  Receipt Date: 20190209
  Transmission Date: 20190418
  Serious: No
  Sender: FDA-Public Use
  Company Number: None

PATIENT
  Age: 85 Year
  Sex: Female
  Weight: 95.25 kg

DRUGS (2)
  1. FOLIC ACID 1 MG TABS, [Suspect]
     Active Substance: FOLIC ACID
     Indication: RHEUMATOID ARTHRITIS
     Route: 048
     Dates: start: 201807
  2. METHOTREXATE 2.5 MG TABLET, [Suspect]
     Active Substance: METHOTREXATE SODIUM
     Indication: RHEUMATOID ARTHRITIS
     Route: 048
     Dates: start: 201711

REACTIONS (3)
  - Intestinal obstruction [None]
  - Fatigue [None]
  - Dehydration [None]
